FAERS Safety Report 6310419-X (Version None)
Quarter: 2009Q3

REPORT INFORMATION
  Report Type: 
  Country: None (occurrence: None)
  Receive Date: 20090814
  Receipt Date: 20090803
  Transmission Date: 20100115
  Serious: Yes (Other)
  Sender: FDA-Public Use
  Company Number: US-PFIZER INC-2009251355

PATIENT
  Sex: Female
  Weight: 61.224 kg

DRUGS (5)
  1. ZOLOFT [Suspect]
     Indication: EMOTIONAL DISORDER
     Dosage: 75 MG, 1X/DAY
     Dates: start: 20050301
  2. PLAQUENIL [Suspect]
     Indication: RHEUMATOID ARTHRITIS
  3. SYNTHROID [Concomitant]
     Indication: AUTOIMMUNE THYROIDITIS
     Dosage: 150 MG, UNK
  4. PREDNISONE [Concomitant]
     Dosage: 5 MG, UNK
  5. IMMUNOGLOBULINS [Concomitant]
     Route: 042

REACTIONS (4)
  - ABORTION SPONTANEOUS [None]
  - BENIGN HYDATIDIFORM MOLE [None]
  - HEPATIC ENZYME INCREASED [None]
  - POLYMYOSITIS [None]
